FAERS Safety Report 17897315 (Version 3)
Quarter: 2020Q4

REPORT INFORMATION
  Report Type: Report from Study
  Country: FR (occurrence: FR)
  Receive Date: 20200615
  Receipt Date: 20201104
  Transmission Date: 20210113
  Serious: Yes (Death)
  Sender: FDA-Public Use
  Company Number: FR-EXELIXIS-XL18419025875

PATIENT
  Age: 77 Year
  Sex: Male
  Weight: 67 kg

DRUGS (2)
  1. CABOZANTINIB [Suspect]
     Active Substance: CABOZANTINIB
     Indication: RENAL CELL CARCINOMA
     Dosage: 60 MG, QD
     Route: 048
     Dates: start: 20191107, end: 20191204
  2. CABOZANTINIB [Suspect]
     Active Substance: CABOZANTINIB
     Dosage: 40 MG, QD
     Route: 048
     Dates: start: 20191205, end: 20200308

REACTIONS (3)
  - Asthenia [Not Recovered/Not Resolved]
  - Back pain [Not Recovered/Not Resolved]
  - Death [Fatal]

NARRATIVE: CASE EVENT DATE: 201911
